FAERS Safety Report 19091600 (Version 2)
Quarter: 2021Q2

REPORT INFORMATION
  Report Type: Report from Study
  Country: US (occurrence: US)
  Receive Date: 20210405
  Receipt Date: 20210609
  Transmission Date: 20210717
  Serious: Yes (Hospitalization)
  Sender: FDA-Public Use
  Company Number: US-BIOGEN-2021BI00996250

PATIENT
  Sex: Female

DRUGS (1)
  1. TYSABRI [Suspect]
     Active Substance: NATALIZUMAB
     Indication: MULTIPLE SCLEROSIS
     Route: 065

REACTIONS (5)
  - Central nervous system lesion [Unknown]
  - Vertebral column mass [Unknown]
  - Gait inability [Unknown]
  - Malaise [Not Recovered/Not Resolved]
  - Dyspnoea [Unknown]
